FAERS Safety Report 9092536 (Version 6)
Quarter: 2014Q1

REPORT INFORMATION
  Report Type: Spontaneous
  Country: US (occurrence: US)
  Receive Date: 20130131
  Receipt Date: 20140312
  Transmission Date: 20141002
  Serious: Yes (Hospitalization, Disabling, Other)
  Sender: FDA-Public Use
  Company Number: US-009507513-1210USA012365

PATIENT
  Sex: Female
  Weight: 74.83 kg

DRUGS (6)
  1. FOSAMAX [Suspect]
     Indication: OSTEOPOROSIS
     Dosage: 10 MG, QD
     Route: 048
     Dates: start: 19980917
  2. FOSAMAX [Suspect]
     Indication: OSTEOPENIA
     Dosage: UNK
     Route: 048
  3. FOSAMAX PLUS D [Suspect]
     Indication: OSTEOPOROSIS
     Dosage: 10 MG, UNK
     Route: 048
     Dates: start: 20080528
  4. FOSAMAX PLUS D [Suspect]
     Indication: OSTEOPENIA
     Dosage: 70 MG, UNK
     Route: 048
     Dates: start: 20080528
  5. RECLAST [Suspect]
     Indication: OSTEOPOROSIS
     Dosage: UNK
     Route: 042
     Dates: start: 201104, end: 201202
  6. RECLAST [Suspect]
     Indication: OSTEOPENIA

REACTIONS (22)
  - Femur fracture [Unknown]
  - Hip fracture [Unknown]
  - Fall [Unknown]
  - Intramedullary rod insertion [Unknown]
  - Anaemia postoperative [Unknown]
  - Femur fracture [Recovering/Resolving]
  - Hip fracture [Recovering/Resolving]
  - Intramedullary rod insertion [Recovering/Resolving]
  - Intraductal proliferative breast lesion [Unknown]
  - Pancreatitis [Recovered/Resolved]
  - Hypoacusis [Unknown]
  - Ligament sprain [Unknown]
  - Fall [Unknown]
  - Foot fracture [Recovered/Resolved]
  - Dyspnoea [Unknown]
  - Humerus fracture [Unknown]
  - Malignant breast lump removal [Unknown]
  - Gingival disorder [Unknown]
  - Anxiety disorder [Unknown]
  - Hiatus hernia [Unknown]
  - Hypertension [Unknown]
  - Radiation skin injury [Unknown]
